FAERS Safety Report 24292166 (Version 1)
Quarter: 2024Q3

REPORT INFORMATION
  Report Type: Spontaneous
  Country: US (occurrence: None)
  Receive Date: 20240906
  Receipt Date: 20240906
  Transmission Date: 20241017
  Serious: No
  Sender: DOMPE FARMACEUTICI
  Company Number: US-FARMAPROD-202307-2113

PATIENT
  Age: 58 Year
  Sex: Female

DRUGS (4)
  1. OXERVATE [Suspect]
     Active Substance: CENEGERMIN-BKBJ
     Indication: Neurotrophic keratopathy
     Route: 047
     Dates: start: 20230707, end: 20230709
  2. ARTIFICIAL TEARS [Concomitant]
     Dates: start: 202304
  3. OFLOXACIN [Concomitant]
     Active Substance: OFLOXACIN
     Dates: start: 202304
  4. PREDNISOLONE ACETATE [Concomitant]
     Active Substance: PREDNISOLONE ACETATE
     Dates: start: 202304

REACTIONS (6)
  - Eye pain [Unknown]
  - Ocular hyperaemia [Recovered/Resolved]
  - Vision blurred [Unknown]
  - Visual impairment [Unknown]
  - Eye discharge [Unknown]
  - Ocular discomfort [Recovered/Resolved]

NARRATIVE: CASE EVENT DATE: 20230701
